FAERS Safety Report 5594417-X (Version None)
Quarter: 2008Q1

REPORT INFORMATION
  Report Type: 
  Country: None (occurrence: None)
  Receive Date: 20080117
  Receipt Date: 20080113
  Transmission Date: 20080703
  Serious: Yes (Hospitalization)
  Sender: FDA-Public Use
  Company Number: BR-JNJFOC-20080103313

PATIENT
  Age: 8 Year
  Sex: Female
  Weight: 36 kg

DRUGS (2)
  1. HALDOL [Suspect]
     Indication: ACCIDENTAL EXPOSURE
     Route: 048
  2. BENZODIAZEPINE [Suspect]
     Indication: ACCIDENTAL EXPOSURE
     Route: 048

REACTIONS (4)
  - ACCIDENTAL EXPOSURE [None]
  - ATAXIA [None]
  - DYSSTASIA [None]
  - GAIT DISTURBANCE [None]
